FAERS Safety Report 22367711 (Version 1)
Quarter: 2023Q2

REPORT INFORMATION
  Report Type: Spontaneous
  Country: US (occurrence: US)
  Receive Date: 20230525
  Receipt Date: 20230525
  Transmission Date: 20230721
  Serious: No
  Sender: FDA-Public Use
  Company Number: US-BRAINTREE LABORATORIES, INC.-2022BTE00472

PATIENT
  Sex: Female
  Weight: 80.726 kg

DRUGS (28)
  1. PEG-3350, SODIUM CHLORIDE, SODIUM BICARBONATE AND POTASSIUM CHLORIDE [Suspect]
     Active Substance: POLYETHYLENE GLYCOL 3350\POTASSIUM CHLORIDE\SODIUM BICARBONATE\SODIUM CHLORIDE
     Indication: Constipation
     Dosage: 4 L, 1X
     Dates: start: 20220531, end: 20220601
  2. INSULIN NOS [Concomitant]
     Active Substance: INSULIN NOS
  3. OZEMPIC [Concomitant]
     Active Substance: SEMAGLUTIDE
  4. TIME GLIMEPIRIDE [Concomitant]
  5. JANUVIA [Concomitant]
     Active Substance: SITAGLIPTIN PHOSPHATE
  6. ALLOPURINOL [Concomitant]
     Active Substance: ALLOPURINOL
  7. ATORVASTATIN CALCIUM [Concomitant]
     Active Substance: ATORVASTATIN CALCIUM
  8. BUMETANIDE [Concomitant]
     Active Substance: BUMETANIDE
  9. CARVEDILOL [Concomitant]
     Active Substance: CARVEDILOL
  10. ELIQUIS [Concomitant]
     Active Substance: APIXABAN
  11. GABAPENTIN [Concomitant]
     Active Substance: GABAPENTIN
  12. LINZESS [Concomitant]
     Active Substance: LINACLOTIDE
  13. PANTOPRAZOLE [Concomitant]
     Active Substance: PANTOPRAZOLE
  14. PRAMIPEXOLE [Concomitant]
     Active Substance: PRAMIPEXOLE
  15. SPIRONOLACTONE [Concomitant]
     Active Substance: SPIRONOLACTONE
  16. SERTRALINE [Concomitant]
     Active Substance: SERTRALINE HYDROCHLORIDE
  17. NITROGLYCERIN [Concomitant]
     Active Substance: NITROGLYCERIN
  18. NITROGLYCERIN [Concomitant]
     Active Substance: NITROGLYCERIN
  19. SYMBICORT [Concomitant]
     Active Substance: BUDESONIDE\FORMOTEROL FUMARATE DIHYDRATE
  20. ASPIRIN [Concomitant]
     Active Substance: ASPIRIN
  21. VITAMINS [Concomitant]
     Active Substance: VITAMINS
  22. VITAMIN B COMPLEX [Concomitant]
     Active Substance: CYANOCOBALAMIN\DEXPANTHENOL\NIACINAMIDE\PYRIDOXINE HYDROCHLORIDE\RIBOFLAVIN 5^-PHOSPHATE SODIUM\THIA
  23. OMEGA 3 [Concomitant]
     Active Substance: CAPSAICIN
  24. IRON [Concomitant]
     Active Substance: IRON
  25. VITAMIN D3 [Concomitant]
     Active Substance: CHOLECALCIFEROL
  26. COENZYME Q10 [Concomitant]
     Active Substance: DIETARY SUPPLEMENT\UBIDECARENONE
  27. ALBUTEROL [Concomitant]
     Active Substance: ALBUTEROL
     Dosage: UNK, AS NEEDED
  28. FREESTYLE LIBRE [Concomitant]

REACTIONS (2)
  - Gastrointestinal sounds abnormal [Not Recovered/Not Resolved]
  - Constipation [Not Recovered/Not Resolved]

NARRATIVE: CASE EVENT DATE: 20220101
